FAERS Safety Report 4747193-4 (Version None)
Quarter: 2005Q3

REPORT INFORMATION
  Report Type: 
  Country: None (occurrence: None)
  Receive Date: 20050815
  Receipt Date: 20050721
  Transmission Date: 20060218
  Serious: Yes (Hospitalization)
  Sender: FDA-Public Use
  Company Number: DSA_26864_2005

PATIENT
  Age: 85 Year
  Sex: Female

DRUGS (6)
  1. DILTIAZEM [Suspect]
     Dosage: DF
  2. ATIVAN [Suspect]
     Indication: CARDIAC DISORDER
     Dosage: 2 MG
  3. FENTANYL [Suspect]
     Indication: CARDIAC DISORDER
     Dosage: 100 MCG
  4. AMIODARONE HCL [Suspect]
     Dosage: DF
  5. METOPROLOL [Suspect]
     Dosage: DF
  6. MG SULFATE [Suspect]
     Dosage: DF

REACTIONS (21)
  - ACCIDENTAL OVERDOSE [None]
  - BLOOD CREATININE INCREASED [None]
  - BLOOD MAGNESIUM DECREASED [None]
  - BLOOD MAGNESIUM INCREASED [None]
  - BLOOD PH DECREASED [None]
  - BLOOD UREA INCREASED [None]
  - BOWEL SOUNDS ABNORMAL [None]
  - ELECTROCARDIOGRAM PR PROLONGATION [None]
  - ELECTROCARDIOGRAM QRS COMPLEX PROLONGED [None]
  - ELECTROCARDIOGRAM QT CORRECTED INTERVAL PROLONGED [None]
  - HYPERCAPNIA [None]
  - HYPOREFLEXIA [None]
  - HYPOVENTILATION [None]
  - LETHARGY [None]
  - LOSS OF CONSCIOUSNESS [None]
  - PARALYSIS [None]
  - PO2 INCREASED [None]
  - RESPIRATORY RATE DECREASED [None]
  - SINUS BRADYCARDIA [None]
  - SOMNOLENCE [None]
  - UNRESPONSIVE TO PAIN STIMULI [None]
